FAERS Safety Report 19300924 (Version 2)
Quarter: 2021Q3

REPORT INFORMATION
  Report Type: Spontaneous
  Country: IT (occurrence: IT)
  Receive Date: 20210525
  Receipt Date: 20210811
  Transmission Date: 20211014
  Serious: Yes (Other)
  Sender: FDA-Public Use
  Company Number: IT-SA-2021SA163213

PATIENT
  Age: 30 Year
  Sex: Female

DRUGS (5)
  1. GUTTALAX [SODIUM PICOSULFATE] [Suspect]
     Active Substance: SODIUM PICOSULFATE
     Indication: DRUG ABUSE
     Dosage: 25 ML
     Route: 048
     Dates: start: 20210308, end: 20210309
  2. STILNOX [Suspect]
     Active Substance: ZOLPIDEM TARTRATE
     Indication: DRUG ABUSE
     Dosage: 10 DF
     Route: 048
     Dates: start: 20210308, end: 20210309
  3. PASADEN [ETIZOLAM] [Suspect]
     Active Substance: ETIZOLAM
     Indication: DRUG ABUSE
     Dosage: 25 ML
     Route: 048
     Dates: start: 20210308, end: 20210309
  4. ALPRAZOLAM. [Suspect]
     Active Substance: ALPRAZOLAM
     Indication: DRUG ABUSE
     Dosage: 10 DF
     Route: 048
     Dates: start: 20210308, end: 20210309
  5. ESCITALOPRAM OXALATE. [Suspect]
     Active Substance: ESCITALOPRAM OXALATE
     Indication: DRUG ABUSE
     Dosage: 12.5 ML
     Route: 048
     Dates: start: 20210308, end: 20210309

REACTIONS (4)
  - Overdose [Unknown]
  - Intentional self-injury [Recovered/Resolved]
  - Sopor [Recovered/Resolved]
  - Drug abuse [Unknown]

NARRATIVE: CASE EVENT DATE: 20210309
